FAERS Safety Report 17705367 (Version 1)
Quarter: 2020Q2

REPORT INFORMATION
  Report Type: Spontaneous
  Country: US (occurrence: US)
  Receive Date: 20200424
  Receipt Date: 20200424
  Transmission Date: 20200714
  Serious: Yes (Hospitalization)
  Sender: FDA-Public Use
  Company Number: US-JACOBUS PHARMACEUTICAL COMPANY, INC.-2083105

PATIENT
  Age: 56 Year
  Sex: Female

DRUGS (31)
  1. ARTHROTEC [Concomitant]
     Active Substance: DICLOFENAC SODIUM\MISOPROSTOL
  2. LIDODERM [Concomitant]
     Active Substance: LIDOCAINE
  3. FIORICET [Concomitant]
     Active Substance: ACETAMINOPHEN\BUTALBITAL\CAFFEINE
  4. VITAMIN B COMPLEX [Concomitant]
     Active Substance: CYANOCOBALAMIN\DEXPANTHENOL\NIACINAMIDE\PYRIDOXINE HYDROCHLORIDE\RIBOFLAVIN 5^-PHOSPHATE SODIUM\THIAMINE HYDROCHLORIDE\VITAMIN B COMPLEX
  5. NORCO [Concomitant]
     Active Substance: ACETAMINOPHEN\HYDROCODONE BITARTRATE
  6. VIMPAT [Concomitant]
     Active Substance: LACOSAMIDE
  7. RITALIN LA [Concomitant]
     Active Substance: METHYLPHENIDATE HYDROCHLORIDE
  8. JANUVIA [Concomitant]
     Active Substance: SITAGLIPTIN PHOSPHATE
  9. ALDACTONGE [Concomitant]
  10. IMMUNOGLOBULIN [Concomitant]
  11. TOPAMAX [Concomitant]
     Active Substance: TOPIRAMATE
  12. ZOFRAN [Concomitant]
     Active Substance: ONDANSETRON HYDROCHLORIDE
  13. LISINOPRIL. [Concomitant]
     Active Substance: LISINOPRIL
  14. PROVIGIL [Concomitant]
     Active Substance: MODAFINIL
  15. TUMERIC [Concomitant]
     Active Substance: HERBALS\TURMERIC
  16. PREDNISONE. [Concomitant]
     Active Substance: PREDNISONE
  17. MESTINON [Concomitant]
     Active Substance: PYRIDOSTIGMINE BROMIDE
  18. HEART CHERRY [Concomitant]
  19. OSCAL [Concomitant]
     Active Substance: CALCIUM CARBONATE
  20. PRODAPSE [Concomitant]
  21. TIROSINT [Concomitant]
     Active Substance: LEVOTHYROXINE SODIUM
  22. MIROLAX OTC [Concomitant]
  23. PANTOPRAZOLE SODIUM. [Concomitant]
     Active Substance: PANTOPRAZOLE SODIUM
  24. LDN NALTREXONE COMPOUNDED FORMULA [Concomitant]
  25. RITUXAN [Concomitant]
     Active Substance: RITUXIMAB
  26. ALLEGRA [Concomitant]
     Active Substance: FEXOFENADINE HYDROCHLORIDE
  27. FLORASTOR [Concomitant]
     Active Substance: SACCHAROMYCES CEREVISIAE
  28. RUZURGI [Suspect]
     Active Substance: AMIFAMPRIDINE
     Indication: MYASTHENIC SYNDROME
     Route: 048
     Dates: start: 20190817
  29. ATIVAN [Concomitant]
     Active Substance: LORAZEPAM
  30. RANITIDINE. [Concomitant]
     Active Substance: RANITIDINE
  31. DULOXETINE. [Concomitant]
     Active Substance: DULOXETINE

REACTIONS (1)
  - Hip arthroplasty [Unknown]

NARRATIVE: CASE EVENT DATE: 20200319
